FAERS Safety Report 11323427 (Version 1)
Quarter: 2015Q3

REPORT INFORMATION
  Report Type: Spontaneous
  Country: US (occurrence: US)
  Receive Date: 20150730
  Receipt Date: 20150730
  Transmission Date: 20151125
  Serious: Yes (Other)
  Sender: FDA-Public Use
  Company Number: US-GILEAD-2015-0164949

PATIENT
  Age: 71 Year
  Sex: Female

DRUGS (25)
  1. LASIX [Concomitant]
     Active Substance: FUROSEMIDE
  2. ZANTAC [Concomitant]
     Active Substance: RANITIDINE HYDROCHLORIDE
  3. AMLODIPINE [Concomitant]
     Active Substance: AMLODIPINE BESYLATE
     Dosage: UNK, PRN
  4. PROBIOTIC                          /06395501/ [Concomitant]
  5. SILDENAFIL. [Suspect]
     Active Substance: SILDENAFIL
  6. OMEPRAZOLE. [Concomitant]
     Active Substance: OMEPRAZOLE
  7. ATIVAN [Concomitant]
     Active Substance: LORAZEPAM
     Dosage: UNK, PRN
  8. REVATIO [Concomitant]
     Active Substance: SILDENAFIL CITRATE
     Indication: PULMONARY ARTERIAL HYPERTENSION
     Dosage: 20 MG, TID
     Dates: end: 20150715
  9. POTASSIUM [Concomitant]
     Active Substance: POTASSIUM
  10. OXYGEN. [Concomitant]
     Active Substance: OXYGEN
     Dosage: 3 L, UNK
     Route: 045
  11. MECLIZINE [Concomitant]
     Active Substance: MECLIZINE\MECLIZINE HYDROCHLORIDE
     Dosage: UNK, PRN
  12. LETAIRIS [Suspect]
     Active Substance: AMBRISENTAN
     Indication: SCLERODERMA
  13. ZYRTEC [Concomitant]
     Active Substance: CETIRIZINE HYDROCHLORIDE
  14. CENTRUM SILVER                     /02363801/ [Concomitant]
     Active Substance: VITAMINS
  15. FISH OIL [Concomitant]
     Active Substance: FISH OIL
     Indication: HYPERLIPIDAEMIA
  16. DOMPERIDONE [Concomitant]
     Active Substance: DOMPERIDONE
  17. RESTASIS [Concomitant]
     Active Substance: CYCLOSPORINE
  18. LETAIRIS [Suspect]
     Active Substance: AMBRISENTAN
     Indication: PULMONARY ARTERIAL HYPERTENSION
     Dosage: 10 MG, QD
     Route: 065
  19. LETAIRIS [Suspect]
     Active Substance: AMBRISENTAN
     Indication: CREST SYNDROME
  20. LEVOTHYROXINE. [Concomitant]
     Active Substance: LEVOTHYROXINE
  21. PROAIR HFA [Concomitant]
     Active Substance: ALBUTEROL SULFATE
  22. METAMUCIL                          /00091301/ [Concomitant]
  23. REVATIO [Concomitant]
     Active Substance: SILDENAFIL CITRATE
     Dosage: 40 MG, TID
     Route: 048
     Dates: start: 20150716
  24. FLUOXETINE [Concomitant]
     Active Substance: FLUOXETINE\FLUOXETINE HYDROCHLORIDE
  25. CARAFATE [Concomitant]
     Active Substance: SUCRALFATE
     Dosage: UNK, PRN

REACTIONS (7)
  - Raynaud^s phenomenon [Unknown]
  - Exercise tolerance decreased [Unknown]
  - Hyperlipidaemia [Unknown]
  - Chest discomfort [Unknown]
  - Hypoxia [Unknown]
  - Thyroid neoplasm [Unknown]
  - Pulmonary arterial hypertension [Unknown]
